FAERS Safety Report 10937610 (Version 2)
Quarter: 2015Q2

REPORT INFORMATION
  Report Type: Spontaneous
  Country: US (occurrence: US)
  Receive Date: 20150321
  Receipt Date: 20150525
  Transmission Date: 20150821
  Serious: No
  Sender: FDA-Public Use
  Company Number: US-JNJFOC-20140512102

PATIENT
  Age: 48 Year
  Sex: Female

DRUGS (3)
  1. DERMA-SMOOTHE [Concomitant]
     Indication: PSORIASIS
     Route: 061
     Dates: start: 201401
  2. STELARA [Suspect]
     Active Substance: USTEKINUMAB
     Indication: PSORIASIS
     Route: 058
     Dates: start: 201312, end: 201404
  3. CLOBETASOL [Concomitant]
     Active Substance: CLOBETASOL
     Indication: PSORIASIS
     Route: 061
     Dates: start: 201307

REACTIONS (3)
  - Aspartate aminotransferase increased [Unknown]
  - Inappropriate schedule of drug administration [Unknown]
  - Blood alkaline phosphatase increased [Unknown]

NARRATIVE: CASE EVENT DATE: 201312
